FAERS Safety Report 10655514 (Version 1)
Quarter: 2014Q4

REPORT INFORMATION
  Report Type: Spontaneous
  Country: US (occurrence: None)
  Receive Date: 20141205
  Receipt Date: 20141205
  Transmission Date: 20150529
  Serious: Yes (Hospitalization)
  Sender: FDA-Public Use
  Company Number: 163-POMAL-14093114

PATIENT
  Age: 81 Year
  Sex: Female

DRUGS (12)
  1. TYLENOL(PARACETAMOL) [Concomitant]
  2. ADVIL(IBUPROFEN) [Concomitant]
  3. FLUDROCORTISONE ACETATE(FLUDROCORTISONE ACETATE) [Concomitant]
  4. ZOMETA(ZOLEDRONE ACID) [Concomitant]
  5. TYLENOL(PARACETAMOL) [Concomitant]
  6. FOLIC ACID(FOLIC ACID) [Concomitant]
  7. EFFEXOR XR (VENLAFAXINE HYDROCHLORIDE) [Concomitant]
  8. ADVIL(IBUPROFEN) [Concomitant]
  9. MIDODRINE [Concomitant]
     Active Substance: MIDODRINE
  10. MIDODRINE HCL(MIDODRINE HYDROCHLORIDE) [Concomitant]
  11. POMALYST [Suspect]
     Active Substance: POMALIDOMIDE
     Indication: PLASMA CELL MYELOMA
     Dosage: 2 MG, 21 IN 21 D, PO
     Route: 048
     Dates: start: 20140612
  12. VENLAFAXINE HCL(VENLAFAXINE HYDROCHLORIDE) [Concomitant]

REACTIONS (1)
  - Pneumonia [None]

NARRATIVE: CASE EVENT DATE: 2014
